FAERS Safety Report 26133514 (Version 1)
Quarter: 2025Q4

REPORT INFORMATION
  Report Type: Spontaneous
  Country: US (occurrence: US)
  Receive Date: 20251209
  Receipt Date: 20251209
  Transmission Date: 20260118
  Serious: Yes (Hospitalization, Other)
  Sender: JOHNSON AND JOHNSON
  Company Number: US-JNJFOC-20251203349

PATIENT
  Age: 53 Year
  Sex: Female

DRUGS (1)
  1. CILTACABTAGENE AUTOLEUCEL [Suspect]
     Active Substance: CILTACABTAGENE AUTOLEUCEL
     Indication: Plasma cell myeloma
     Dosage: 0.6 ? 106 CAR+ T-CELLS/KG

REACTIONS (8)
  - Cytokine release syndrome [Recovered/Resolved]
  - Immune effector cell-associated neurotoxicity syndrome [Recovered/Resolved]
  - Immune effector cell-associated HLH-like syndrome [Recovered/Resolved]
  - Thrombocytopenia [Unknown]
  - Myelosuppression [Unknown]
  - Hypoxia [Unknown]
  - Facial paralysis [Recovered/Resolved]
  - Anaemia [Unknown]
